FAERS Safety Report 8111410-3 (Version None)
Quarter: 2012Q1

REPORT INFORMATION
  Report Type: 
  Country: None (occurrence: None)
  Receive Date: 20120203
  Receipt Date: 20111117
  Transmission Date: 20120608
  Serious: No
  Sender: FDA-Public Use
  Company Number: US-GLAXOSMITHKLINE-A0953740A

PATIENT
  Age: 60 Year
  Sex: Female

DRUGS (5)
  1. LAMICTAL [Suspect]
     Indication: BIPOLAR DISORDER
     Route: 048
     Dates: start: 20110901, end: 20111117
  2. CRESTOR [Concomitant]
  3. ASPIRIN [Concomitant]
  4. LEXAPRO [Concomitant]
  5. LAMICTAL [Suspect]
     Route: 065

REACTIONS (2)
  - VAGINAL INFECTION [None]
  - RASH [None]
